FAERS Safety Report 16898916 (Version 1)
Quarter: 2019Q4

REPORT INFORMATION
  Report Type: Spontaneous
  Country: US (occurrence: US)
  Receive Date: 20190815
  Receipt Date: 20190815
  Transmission Date: 20200122
  Serious: Yes (Life-Threatening, Hospitalization, Other)
  Sender: FDA-Public Use
  Company Number: None

PATIENT
  Age: 14 Year
  Sex: Male
  Weight: 10.14 kg

DRUGS (4)
  1. ALPROLIX [Suspect]
     Active Substance: EFTRENONACOG ALFA
     Route: 041
  2. ALPROLIX [Suspect]
     Active Substance: EFTRENONACOG ALFA
     Dates: start: 20190730
  3. ALPROLIX [Suspect]
     Active Substance: EFTRENONACOG ALFA
     Dates: start: 20190730
  4. ALPROLIX [Suspect]
     Active Substance: EFTRENONACOG ALFA
     Dosage: ?          OTHER FREQUENCY:X 1 ;?
     Dates: start: 20190730

REACTIONS (2)
  - Anti factor IX antibody increased [None]
  - Anaphylactic reaction [None]

NARRATIVE: CASE EVENT DATE: 20190730
